FAERS Safety Report 8817680 (Version 1)
Quarter: 2012Q4

REPORT INFORMATION
  Report Type: Report from Study
  Country: GB (occurrence: GB)
  Receive Date: 20121001
  Receipt Date: 20121001
  Transmission Date: 20130627
  Serious: Yes (Disabling)
  Sender: FDA-Public Use
  Company Number: PHHO2012GB014084

PATIENT
  Age: 78 Year
  Sex: Male
  Weight: 94 kg

DRUGS (9)
  1. ZOLEDRONATE [Suspect]
     Indication: PROSTATE CANCER
     Dosage: 4 mg once a month
     Route: 042
     Dates: start: 20110906, end: 20120807
  2. DOCETAXEL [Suspect]
     Indication: PROSTATE CANCER METASTATIC
     Dosage: 150 mg, UNK
     Route: 042
     Dates: start: 20110906
  3. DECAPEPTYL [Concomitant]
     Indication: PROSTATE CANCER
     Dosage: 3 mg once a month
     Route: 030
     Dates: start: 20110617
  4. FERROUS FUMARATE [Concomitant]
     Dosage: 210 mg, BID
  5. CALCIUM D3 [Concomitant]
     Dosage: 1500 mg, QD
  6. BENDROFLUAZIDE [Concomitant]
     Dosage: 2.5 mg, QD
  7. LISINOPRIL [Concomitant]
     Dosage: 20 mg, QD
  8. AMLODIPINE [Concomitant]
     Dosage: 5 mg, QD
  9. PEPTAC [Concomitant]
     Dosage: as required

REACTIONS (1)
  - Osteonecrosis of jaw [Not Recovered/Not Resolved]
